FAERS Safety Report 13396925 (Version 2)
Quarter: 2017Q2

REPORT INFORMATION
  Report Type: Other
  Country: CA (occurrence: CA)
  Receive Date: 20170403
  Receipt Date: 20170504
  Transmission Date: 20170830
  Serious: Yes (Other)
  Sender: FDA-Public Use
  Company Number: CA-APOTEX-2017AP008986

PATIENT
  Age: 46 Year
  Sex: Female
  Weight: 92 kg

DRUGS (1)
  1. APO-TOLTERODINE [Suspect]
     Active Substance: TOLTERODINE
     Indication: HYPERTONIC BLADDER
     Dosage: 4 MG, QD
     Route: 065

REACTIONS (7)
  - Drug ineffective [Recovered/Resolved]
  - Condition aggravated [Recovered/Resolved]
  - Hypertonic bladder [Recovered/Resolved]
  - Nocturia [Recovered/Resolved]
  - Product substitution issue [Recovered/Resolved]
  - Urinary retention [Recovered/Resolved]
  - Micturition urgency [Recovered/Resolved]
